FAERS Safety Report 10397472 (Version 2)
Quarter: 2014Q3

REPORT INFORMATION
  Report Type: Spontaneous
  Country: DE (occurrence: DE)
  Receive Date: 20140820
  Receipt Date: 20140820
  Transmission Date: 20150326
  Serious: Yes (Other)
  Sender: FDA-Public Use
  Company Number: DE-BAXTER-2014BAX037125

PATIENT
  Age: 1 Month
  Sex: Male

DRUGS (2)
  1. GAMUNEX [Suspect]
     Active Substance: HUMAN IMMUNOGLOBULIN G
     Indication: ANAEMIA
     Route: 065
  2. HUMAN ALBUMIN 50 G/L BAXTER [Suspect]
     Active Substance: ALBUMIN (HUMAN)
     Indication: PRODUCT USED FOR UNKNOWN INDICATION
     Route: 065
     Dates: start: 20140219

REACTIONS (2)
  - Direct infection transmission [Unknown]
  - Cytomegalovirus infection [Unknown]

NARRATIVE: CASE EVENT DATE: 20140221
